FAERS Safety Report 8217648-9 (Version None)
Quarter: 2012Q1

REPORT INFORMATION
  Report Type: 
  Country: None (occurrence: None)
  Receive Date: 20120305
  Receipt Date: 20111006
  Transmission Date: 20120608
  Serious: No
  Sender: FDA-Public Use
  Company Number: 1000024517

PATIENT
  Sex: Male

DRUGS (1)
  1. DALIRESP [Suspect]
     Dosage: 500 MCG (500 MCG,1 IN 1 D), ORAL
     Route: 048

REACTIONS (1)
  - HYPOAESTHESIA ORAL [None]
